FAERS Safety Report 24608332 (Version 1)
Quarter: 2024Q4

REPORT INFORMATION
  Report Type: Report from Study
  Country: JP (occurrence: JP)
  Receive Date: 20241112
  Receipt Date: 20241112
  Transmission Date: 20250115
  Serious: Yes (Hospitalization, Other)
  Sender: ALEXION PHARMACEUTICALS
  Company Number: JP-ASTRAZENECA-230005008_011820_P_1

PATIENT
  Age: 16 Year
  Weight: 45 kg

DRUGS (14)
  1. KOSELUGO [Suspect]
     Active Substance: SELUMETINIB
     Indication: Neurofibroma
     Dosage: 70 MILLIGRAM
  2. KOSELUGO [Suspect]
     Active Substance: SELUMETINIB
     Dosage: 70 MILLIGRAM
  3. KOSELUGO [Suspect]
     Active Substance: SELUMETINIB
     Dosage: 70 MILLIGRAM
  4. KOSELUGO [Suspect]
     Active Substance: SELUMETINIB
     Dosage: 70 MILLIGRAM
  5. KOSELUGO [Suspect]
     Active Substance: SELUMETINIB
     Indication: Neurofibroma
     Dosage: 35 MILLIGRAM, BID
  6. KOSELUGO [Suspect]
     Active Substance: SELUMETINIB
     Dosage: 35 MILLIGRAM, BID
  7. KOSELUGO [Suspect]
     Active Substance: SELUMETINIB
     Dosage: 35 MILLIGRAM, BID
  8. KOSELUGO [Suspect]
     Active Substance: SELUMETINIB
     Dosage: 35 MILLIGRAM, BID
  9. MIYA-BM [Concomitant]
     Active Substance: CLOSTRIDIUM BUTYRICUM SPORES STRAIN M-55
     Indication: Prophylaxis
     Dosage: UNK
  10. MIYA-BM [Concomitant]
     Active Substance: CLOSTRIDIUM BUTYRICUM SPORES STRAIN M-55
     Dosage: UNK
  11. DOMPERIDONE [Concomitant]
     Active Substance: DOMPERIDONE
     Indication: Prophylaxis
     Dosage: UNK
  12. DOMPERIDONE [Concomitant]
     Active Substance: DOMPERIDONE
     Dosage: UNK
  13. LOPERAMIDE [Concomitant]
     Active Substance: LOPERAMIDE
     Indication: Prophylaxis
     Dosage: UNK
  14. LOPERAMIDE [Concomitant]
     Active Substance: LOPERAMIDE
     Dosage: UNK

REACTIONS (10)
  - Pneumothorax [Recovered/Resolved]
  - Malaise [Recovered/Resolved]
  - Diarrhoea [Recovered/Resolved]
  - Nausea [Recovered/Resolved]
  - Pain [Recovered/Resolved]
  - Acne [Recovering/Resolving]
  - Dry skin [Recovering/Resolving]
  - Alopecia [Recovering/Resolving]
  - Hair colour changes [Recovering/Resolving]
  - Stomatitis [Recovered/Resolved]
